FAERS Safety Report 4557291-6 (Version None)
Quarter: 2005Q1

REPORT INFORMATION
  Report Type: 
  Country: None (occurrence: None)
  Receive Date: 20050118
  Receipt Date: 20050105
  Transmission Date: 20050727
  Serious: Yes (Other)
  Sender: FDA-Public Use
  Company Number: 2005006306

PATIENT
  Age: 44 Year
  Sex: Female

DRUGS (2)
  1. SERTRALINE HCL [Suspect]
     Indication: DEPRESSION
     Dosage: 20 MG (20 MG 1 IN 1 D)
  2. ANTINEOPLASTIC AGENTS (ANTINEOPLASTIC AGENTS) [Concomitant]

REACTIONS (1)
  - BLOOD ALKALINE PHOSPHATASE INCREASED [None]
